FAERS Safety Report 6917247-2 (Version None)
Quarter: 2010Q3

REPORT INFORMATION
  Report Type: 
  Country: None (occurrence: None)
  Receive Date: 20100805
  Receipt Date: 20100719
  Transmission Date: 20110219
  Serious: Yes (Death)
  Sender: FDA-Public Use
  Company Number: APP201000608

PATIENT
  Age: 32 Year
  Sex: Male
  Weight: 388 kg

DRUGS (7)
  1. HEPARIN SODIUM INJECTION [Suspect]
     Indication: PROPHYLAXIS
     Dosage: SEE IMAGE
     Route: 040
  2. CEPHALEXIN [Concomitant]
  3. FONDAPARINUX (FONDAPARINUX) [Concomitant]
  4. BROAD SPECTRUM ANTIBIOTICS (ANTIBIOTICS) [Concomitant]
  5. CORTICOSTEROIDS (CORTICOSTEROIDS) [Concomitant]
  6. BRONCHODILATORS [Concomitant]
  7. VASOPRESSOR [Concomitant]

REACTIONS (7)
  - COR PULMONALE [None]
  - ELECTROMECHANICAL DISSOCIATION [None]
  - HEPARIN-INDUCED THROMBOCYTOPENIA [None]
  - HYPOTENSION [None]
  - HYPOXIA [None]
  - PULMONARY HAEMORRHAGE [None]
  - PULMONARY HYPERTENSION [None]
